FAERS Safety Report 8334214-5 (Version None)
Quarter: 2012Q2

REPORT INFORMATION
  Report Type: 
  Country: None (occurrence: None)
  Receive Date: 20120503
  Receipt Date: 20120426
  Transmission Date: 20120825
  Serious: Yes (Hospitalization)
  Sender: FDA-Public Use
  Company Number: US-GLAXOSMITHKLINE-A0976043A

PATIENT
  Age: 56 Year
  Sex: Female

DRUGS (2)
  1. TYKERB [Suspect]
     Indication: BREAST CANCER
     Dosage: 1250MG PER DAY
     Route: 048
     Dates: start: 20110801
  2. TOPROL-XL [Concomitant]

REACTIONS (3)
  - CONVULSION [None]
  - BRAIN OEDEMA [None]
  - RADIATION INJURY [None]
